FAERS Safety Report 9292340 (Version 1)
Quarter: 2013Q2

REPORT INFORMATION
  Report Type: Spontaneous
  Country: US (occurrence: US)
  Receive Date: 20130516
  Receipt Date: 20130516
  Transmission Date: 20140414
  Serious: Yes (Hospitalization)
  Sender: FDA-Public Use
  Company Number: US-PFIZER INC-2013148548

PATIENT
  Age: 82 Year
  Sex: Male
  Weight: 80 kg

DRUGS (7)
  1. TIKOSYN [Suspect]
     Indication: ATRIAL FIBRILLATION
     Dosage: 500 UG, 2X/DAY
     Route: 048
     Dates: end: 20130513
  2. ALBUTEROL [Concomitant]
     Dosage: UNK
  3. FERROUS GLUCONATE [Concomitant]
     Dosage: UNK
  4. LACTULOSE [Concomitant]
     Dosage: UNK
  5. NASALIDE [Concomitant]
     Dosage: UNK
  6. ZYRTEC [Concomitant]
     Dosage: UNK
  7. COLACE [Concomitant]
     Indication: FAECES HARD
     Dosage: UNK

REACTIONS (6)
  - Respiratory distress [Unknown]
  - Atrial fibrillation [Unknown]
  - Heart rate increased [Unknown]
  - Epistaxis [Unknown]
  - Blood potassium increased [Unknown]
  - Electrocardiogram T wave abnormal [Unknown]
